FAERS Safety Report 12718663 (Version 2)
Quarter: 2016Q3

REPORT INFORMATION
  Report Type: Spontaneous
  Country: US (occurrence: US)
  Receive Date: 20160906
  Receipt Date: 20160927
  Transmission Date: 20161109
  Serious: Yes (Hospitalization, Other)
  Sender: FDA-Public Use
  Company Number: US-GLAXOSMITHKLINE-US2016127279

PATIENT
  Age: 83 Year
  Sex: Male

DRUGS (31)
  1. BREO ELLIPTA [Suspect]
     Active Substance: FLUTICASONE FUROATE\VILANTEROL TRIFENATATE
     Indication: CHRONIC OBSTRUCTIVE PULMONARY DISEASE
     Dosage: 1 PUFF(S), QD
     Route: 055
     Dates: start: 20160827
  2. BUDESONIDE. [Concomitant]
     Active Substance: BUDESONIDE
  3. DULERA [Concomitant]
     Active Substance: FORMOTEROL FUMARATE DIHYDRATE\MOMETASONE FUROATE
  4. ALPRAZOLAM. [Concomitant]
     Active Substance: ALPRAZOLAM
  5. ASPIRIN. [Concomitant]
     Active Substance: ASPIRIN
  6. FUROSEMIDE. [Concomitant]
     Active Substance: FUROSEMIDE
  7. PREDNISONE. [Concomitant]
     Active Substance: PREDNISONE
  8. SUCRALFATE. [Concomitant]
     Active Substance: SUCRALFATE
  9. DIPHENHYDRAMINE. [Concomitant]
     Active Substance: DIPHENHYDRAMINE
  10. ZOFRAN [Concomitant]
     Active Substance: ONDANSETRON HYDROCHLORIDE
  11. ANORO ELLIPTA [Suspect]
     Active Substance: UMECLIDINIUM BROMIDE\VILANTEROL TRIFENATATE
     Indication: CHRONIC OBSTRUCTIVE PULMONARY DISEASE
     Dosage: 1 PUFF(S), QD
     Route: 055
     Dates: start: 201601, end: 201607
  12. DUONEB [Concomitant]
     Active Substance: ALBUTEROL SULFATE\IPRATROPIUM BROMIDE
  13. FERROUS SULFATE. [Concomitant]
     Active Substance: FERROUS SULFATE
  14. XANAX [Concomitant]
     Active Substance: ALPRAZOLAM
  15. COMBIVENT RESPIMAT [Concomitant]
     Active Substance: ALBUTEROL SULFATE\IPRATROPIUM BROMIDE
  16. DOK [Concomitant]
     Active Substance: DOCUSATE SODIUM
  17. LISINOPRIL. [Concomitant]
     Active Substance: LISINOPRIL
  18. MOTRIN [Concomitant]
     Active Substance: IBUPROFEN
  19. SPIRIVA [Concomitant]
     Active Substance: TIOTROPIUM BROMIDE MONOHYDRATE
  20. COLACE [Concomitant]
     Active Substance: DOCUSATE SODIUM
  21. CIPRO [Suspect]
     Active Substance: CIPROFLOXACIN HYDROCHLORIDE
     Indication: PRODUCT USED FOR UNKNOWN INDICATION
     Dosage: UNK
  22. BROVANA [Concomitant]
     Active Substance: ARFORMOTEROL TARTRATE
  23. FENOFIBRATE. [Concomitant]
     Active Substance: FENOFIBRATE
  24. INCRUSE ELLIPTA [Suspect]
     Active Substance: UMECLIDINIUM BROMIDE
     Indication: CHRONIC OBSTRUCTIVE PULMONARY DISEASE
     Dosage: 1 PUFF(S), QD
     Route: 055
     Dates: start: 20160827
  25. IPRATROPIUM BROMIDE + SALBUTAMOL NEBULIZER SOLUTION [Concomitant]
     Active Substance: ALBUTEROL SULFATE\IPRATROPIUM BROMIDE
  26. PLAVIX [Concomitant]
     Active Substance: CLOPIDOGREL BISULFATE
  27. FAMOTIDINE. [Concomitant]
     Active Substance: FAMOTIDINE
  28. PANTOPRAZOLE SODIUM. [Concomitant]
     Active Substance: PANTOPRAZOLE SODIUM
  29. CARAFATE [Concomitant]
     Active Substance: SUCRALFATE
  30. TYLENOL [Concomitant]
     Active Substance: ACETAMINOPHEN
  31. BENADRYL [Concomitant]
     Active Substance: DIPHENHYDRAMINE HYDROCHLORIDE

REACTIONS (38)
  - Transfusion [Unknown]
  - Dysstasia [Recovered/Resolved]
  - Gastrointestinal haemorrhage [Recovering/Resolving]
  - Anaemia [Unknown]
  - Dyspnoea [Recovered/Resolved]
  - Haematochezia [Recovered/Resolved]
  - Hyperhidrosis [Recovered/Resolved]
  - Muscular weakness [Recovered/Resolved]
  - Dysstasia [Unknown]
  - Nausea [Unknown]
  - Hallucination [Unknown]
  - Drug hypersensitivity [Unknown]
  - Chronic obstructive pulmonary disease [Unknown]
  - Iron deficiency [Unknown]
  - Abdominal pain [Unknown]
  - Constipation [Unknown]
  - Faeces discoloured [Unknown]
  - Tachycardia [Unknown]
  - Gait disturbance [Recovered/Resolved]
  - Psychomotor hyperactivity [Recovered/Resolved]
  - Paraesthesia [Recovered/Resolved]
  - Insomnia [Not Recovered/Not Resolved]
  - Asthenia [Unknown]
  - Body temperature increased [Recovered/Resolved]
  - Anaphylactic shock [Unknown]
  - Fatigue [Unknown]
  - Hypotension [Unknown]
  - Abdominal discomfort [Unknown]
  - Nonspecific reaction [Recovered/Resolved]
  - Poor quality sleep [Unknown]
  - Lethargy [Unknown]
  - Hypovolaemic shock [Unknown]
  - Functional gastrointestinal disorder [Unknown]
  - Retching [Unknown]
  - Duodenal ulcer [Recovered/Resolved]
  - Pruritus [Not Recovered/Not Resolved]
  - Formication [Unknown]
  - Adverse reaction [Unknown]

NARRATIVE: CASE EVENT DATE: 2016
